FAERS Safety Report 24935385 (Version 1)
Quarter: 2025Q1

REPORT INFORMATION
  Report Type: Spontaneous
  Country: US (occurrence: US)
  Receive Date: 20250206
  Receipt Date: 20250206
  Transmission Date: 20250409
  Serious: No
  Sender: ABBVIE
  Company Number: US-ABBVIE-6119440

PATIENT
  Age: 23 Year
  Sex: Female

DRUGS (1)
  1. VRAYLAR [Suspect]
     Active Substance: CARIPRAZINE
     Indication: Depression
     Route: 048

REACTIONS (5)
  - Headache [Unknown]
  - Feeling of body temperature change [Unknown]
  - Panic attack [Unknown]
  - Flushing [Unknown]
  - Illness [Unknown]
